FAERS Safety Report 25334658 (Version 1)
Quarter: 2025Q2

REPORT INFORMATION
  Report Type: Spontaneous
  Country: GB (occurrence: GB)
  Receive Date: 20250520
  Receipt Date: 20250520
  Transmission Date: 20250716
  Serious: Yes (Other)
  Sender: AMGEN
  Company Number: None

PATIENT
  Age: 67 Year
  Sex: Male

DRUGS (4)
  1. USTEKINUMAB [Suspect]
     Active Substance: USTEKINUMAB
     Indication: Psoriasis
     Route: 065
  2. NOVORAPID [Concomitant]
     Active Substance: INSULIN ASPART
  3. TRESIBA [Concomitant]
     Active Substance: INSULIN DEGLUDEC
  4. LANSOPRAZOLE [Concomitant]
     Active Substance: LANSOPRAZOLE

REACTIONS (1)
  - Acute myocardial infarction [Recovered/Resolved with Sequelae]

NARRATIVE: CASE EVENT DATE: 20250408
